FAERS Safety Report 9245019 (Version 1)
Quarter: 2013Q2

REPORT INFORMATION
  Report Type: Spontaneous
  Country: BR (occurrence: BR)
  Receive Date: 20130422
  Receipt Date: 20130422
  Transmission Date: 20140414
  Serious: Yes (Death, Hospitalization, Other)
  Sender: FDA-Public Use
  Company Number: BR-JNJFOC-20130405253

PATIENT
  Age: 20 Year
  Sex: Female

DRUGS (2)
  1. HALDOL [Suspect]
     Indication: SCHIZOPHRENIA
     Route: 048
     Dates: start: 20030426, end: 2006
  2. HALDOL [Suspect]
     Indication: SCHIZOPHRENIA
     Route: 030
     Dates: start: 2006, end: 2006

REACTIONS (7)
  - Death [Fatal]
  - Dyspnoea [Unknown]
  - Laryngeal oedema [Unknown]
  - Psychotic disorder [Unknown]
  - Drug prescribing error [Unknown]
  - Glassy eyes [Unknown]
  - Protrusion tongue [Unknown]
